FAERS Safety Report 16715021 (Version 3)
Quarter: 2019Q3

REPORT INFORMATION
  Report Type: Report from Study
  Country: DE (occurrence: DE)
  Receive Date: 20190819
  Receipt Date: 20190830
  Transmission Date: 20191005
  Serious: Yes (Hospitalization, Other)
  Sender: FDA-Public Use
  Company Number: DE-BRISTOL-MYERS SQUIBB COMPANY-BMS-2019-076125

PATIENT
  Age: 84 Year
  Sex: Male

DRUGS (3)
  1. MEROPENEM. [Suspect]
     Active Substance: MEROPENEM
     Indication: INFLAMMATORY MARKER INCREASED
     Dosage: UNK
     Route: 065
  2. APIXABAN [Suspect]
     Active Substance: APIXABAN
     Indication: CEREBROVASCULAR ACCIDENT PROPHYLAXIS
     Dosage: 2.5 MILLIGRAM, BID
     Route: 065
     Dates: start: 201712
  3. AMIODARONE [Concomitant]
     Active Substance: AMIODARONE
     Indication: ATRIAL FIBRILLATION
     Dosage: UNK
     Route: 065

REACTIONS (13)
  - Paraplegia [Unknown]
  - Spinal osteoarthritis [Unknown]
  - Dermatitis allergic [Unknown]
  - Basal ganglia infarction [Unknown]
  - Infection [Unknown]
  - Ischaemic stroke [Recovering/Resolving]
  - Vascular encephalopathy [Unknown]
  - Myopathy [Unknown]
  - Muscular weakness [Unknown]
  - Hypoproteinaemia [Unknown]
  - Guillain-Barre syndrome [Unknown]
  - Oedema peripheral [Unknown]
  - Cardiac failure [Unknown]

NARRATIVE: CASE EVENT DATE: 20190722
